FAERS Safety Report 23761979 (Version 3)
Quarter: 2024Q2

REPORT INFORMATION
  Report Type: Spontaneous
  Country: JP (occurrence: JP)
  Receive Date: 20240419
  Receipt Date: 20240528
  Transmission Date: 20240716
  Serious: Yes (Hospitalization)
  Sender: FDA-Public Use
  Company Number: JP-OTSUKA-2024_011246

PATIENT
  Age: 45 Year
  Sex: Male
  Weight: 65.3 kg

DRUGS (6)
  1. REXULTI [Suspect]
     Active Substance: BREXPIPRAZOLE
     Indication: Allergy test
     Dosage: 1 MG, QD
     Route: 048
     Dates: start: 20240312, end: 20240313
  2. OLANZAPINE [Concomitant]
     Active Substance: OLANZAPINE
     Indication: Schizophrenia
     Dosage: 10 MG, QD
     Route: 048
     Dates: start: 20160802
  3. MAGNESIUM OXIDE [Concomitant]
     Active Substance: MAGNESIUM OXIDE
     Indication: Constipation
     Dosage: 330 MG, BID
     Route: 048
     Dates: start: 20161206
  4. SENNOSIDES A AND B [Concomitant]
     Active Substance: SENNOSIDES A AND B
     Indication: Constipation
     Dosage: 12 MG, QD
     Route: 048
     Dates: start: 20160512, end: 20240412
  5. ESZOPICLONE [Concomitant]
     Active Substance: ESZOPICLONE
     Indication: Insomnia
     Dosage: 1 MG, QD
     Route: 048
     Dates: start: 20160629
  6. BIPERIDEN HYDROCHLORIDE [Concomitant]
     Active Substance: BIPERIDEN HYDROCHLORIDE
     Indication: Schizophrenia
     Dosage: PRN, 1 MG/TIME
     Route: 048
     Dates: start: 20211116, end: 20240413

REACTIONS (1)
  - Diverticulitis [Recovered/Resolved]

NARRATIVE: CASE EVENT DATE: 20240414
